FAERS Safety Report 19775525 (Version 1)
Quarter: 2021Q3

REPORT INFORMATION
  Report Type: Spontaneous
  Country: CA (occurrence: CA)
  Receive Date: 20210901
  Receipt Date: 20210901
  Transmission Date: 20211014
  Serious: Yes (Hospitalization)
  Sender: FDA-Public Use
  Company Number: CA-PFIZER INC-2021475825

PATIENT
  Age: 68 Year
  Sex: Female

DRUGS (3)
  1. NIVOLUMAB [Concomitant]
     Active Substance: NIVOLUMAB
     Dosage: UNK
  2. CYCLOPHOSPHAMIDE. [Concomitant]
     Active Substance: CYCLOPHOSPHAMIDE
     Indication: OVARIAN CANCER
     Dosage: UNK
     Dates: start: 202101
  3. ZIRABEV [Suspect]
     Active Substance: BEVACIZUMAB-BVZR
     Indication: OVARIAN CANCER
     Dosage: 1200 MG, EVERY 3 WEEKS
     Route: 042
     Dates: start: 20210520, end: 20210630

REACTIONS (2)
  - Off label use [Unknown]
  - General physical health deterioration [Unknown]
